FAERS Safety Report 17900125 (Version 2)
Quarter: 2020Q2

REPORT INFORMATION
  Report Type: Spontaneous
  Country: ES (occurrence: ES)
  Receive Date: 20200616
  Receipt Date: 20200629
  Transmission Date: 20200714
  Serious: Yes (Life-Threatening)
  Sender: FDA-Public Use
  Company Number: ES-ACCORD-185059

PATIENT
  Age: 64 Year
  Sex: Male

DRUGS (10)
  1. OMEPRAZOLE. [Concomitant]
     Active Substance: OMEPRAZOLE
     Route: 048
     Dates: start: 20170419
  2. MYCOPHENOLIC ACID. [Suspect]
     Active Substance: MYCOPHENOLIC ACID
     Indication: HEART TRANSPLANT
     Route: 048
     Dates: start: 20170419
  3. PREDNISONE. [Interacting]
     Active Substance: PREDNISONE
     Indication: HEART TRANSPLANT
     Route: 048
     Dates: start: 20170419
  4. PRAVASTATIN. [Concomitant]
     Active Substance: PRAVASTATIN
     Indication: DYSLIPIDAEMIA
     Route: 048
     Dates: start: 20170419
  5. MUPIROCIN/MUPIROCIN CALCIUM [Interacting]
     Active Substance: MUPIROCIN\MUPIROCIN CALCIUM
     Indication: ACTINIC KERATOSIS
     Route: 061
     Dates: start: 20181231
  6. PICATO [Interacting]
     Active Substance: INGENOL MEBUTATE
     Indication: ACTINIC KERATOSIS
     Dosage: STRENGTH: 150 MICROGRAMS / GRAM
     Route: 061
     Dates: start: 20190403, end: 20190405
  7. FOLIC ACID. [Concomitant]
     Active Substance: FOLIC ACID
     Indication: HEART TRANSPLANT
     Route: 048
     Dates: start: 20170419
  8. PARACETAMOL [Concomitant]
     Active Substance: ACETAMINOPHEN
     Route: 048
     Dates: start: 20170419
  9. ADVAGRAF [Interacting]
     Active Substance: TACROLIMUS
     Indication: HEART TRANSPLANT
     Dosage: STRENGTH: 1 MG
     Route: 048
     Dates: start: 20170419
  10. PICATO [Interacting]
     Active Substance: INGENOL MEBUTATE
     Indication: ACTINIC KERATOSIS
     Dosage: STRENGTH: 150 MICROGRAMS / GRAM, 3 SINGLE-DOSE TUBES OF 0.47 G
     Route: 061
     Dates: start: 20181231, end: 20190102

REACTIONS (2)
  - Drug interaction [Unknown]
  - Squamous cell carcinoma of skin [Not Recovered/Not Resolved]

NARRATIVE: CASE EVENT DATE: 201906
